FAERS Safety Report 7989389-4 (Version None)
Quarter: 2011Q4

REPORT INFORMATION
  Report Type: 
  Country: None (occurrence: None)
  Receive Date: 20111215
  Receipt Date: 20111207
  Transmission Date: 20120403
  Serious: Yes (Hospitalization)
  Sender: FDA-Public Use
  Company Number: 1000025522

PATIENT
  Age: 68 Year
  Sex: Male
  Weight: 147.4 kg

DRUGS (19)
  1. ALBUTEROL SULFATE (SALBUTAMOL SULFATE) (INHALANT) (SALBUTAMOL SULFATE) [Concomitant]
  2. ASPIRIN (ACETYLSALICYLIC ACID) (TABLETS) (ACETYLSALICYLIC ACID) [Concomitant]
  3. PLAVIX (CLOPIDOGREL BISULFATE) (TABLETS) (CLOPIDOGREL BISULFATE) [Concomitant]
  4. FUROSEMIDE [Concomitant]
  5. MYCELEX (CLOTRIMAZOLE) (TROCHE) (CLOTRIMAZOLE) [Concomitant]
  6. LISINOPRIL (LISINOPRIL) (TABLETS) (LISINOPRIL) [Concomitant]
  7. PANTOPRAZOLE SODIUM(PANTOPRAZOLE SODIUM SESQUIHYDRATE) (TABLETS) (PANT [Concomitant]
  8. TRILIPIX (CHOLINE FENOFIBRATE) (CAPSULES) (CHOLINE FENOFIBRATE) [Concomitant]
  9. VICTOZA (LIRAGLUTIDE) (LIRAGLUTIDE) [Concomitant]
  10. VITAMIN D(TABLETS) [Concomitant]
  11. ADVAIR (SERETIDE) (INHALANT) (SERETIDE) [Concomitant]
  12. CYANOCOBALAMIN (CYANOCOBALAMIN) (TABLETS) (CYANOCOBALAMIN) [Concomitant]
  13. SPIRIVA (TIOTROPIUM BROMIDE) (CAPSULES) (TIOTROPIUM BROMIDE) [Concomitant]
  14. VENTOLIN HFA(SALBUTAMOL SULFATE) (SALBUTAMOL SULFATE) [Concomitant]
  15. NIACIN (NICOTINIC ACID ) (TABLETS) (NICOTINIC ACID) [Concomitant]
  16. VITAMIN C(VITAMIN C) (TABLETS) (VITAMIN C) [Concomitant]
  17. DALIRESP [Suspect]
     Indication: INFECTIVE EXACERBATION OF CHRONIC OBSTRUCTIVE AIRWAYS DISEASE
     Dosage: 500 MCG (500MG, 1 IN 1 D), ORAL
     Route: 048
     Dates: start: 20110912, end: 20110930
  18. PRAVASTATIN SODIUM (PRAVASTATIN SODIUM) (PRAVASTATIN SODIUM) [Concomitant]
  19. SYNTHROID (LEVOTHYROXINE SODIUM) (TABLETS) (LEVOTHYROXINE SODIUM) [Concomitant]

REACTIONS (4)
  - ARRHYTHMIA [None]
  - HEART RATE DECREASED [None]
  - VENTRICULAR EXTRASYSTOLES [None]
  - HYPOTENSION [None]
